FAERS Safety Report 6436121-1 (Version None)
Quarter: 2009Q4

REPORT INFORMATION
  Report Type: 
  Country: None (occurrence: None)
  Receive Date: 20091111
  Receipt Date: 20091102
  Transmission Date: 20100525
  Serious: Yes (Other)
  Sender: FDA-Public Use
  Company Number: US-BAYER-200938091NA

PATIENT
  Age: 73 Year
  Sex: Female

DRUGS (2)
  1. FLUDARA [Suspect]
     Dates: start: 20050706, end: 20050708
  2. REVLIMID [Suspect]
     Indication: MYELODYSPLASTIC SYNDROME
     Dosage: TOTAL DAILY DOSE: 10 MG
     Route: 048
     Dates: start: 20081031

REACTIONS (8)
  - BLOOD COUNT ABNORMAL [None]
  - DEAFNESS UNILATERAL [None]
  - EAR HAEMORRHAGE [None]
  - EAR INFECTION [None]
  - HAEMOGLOBIN DECREASED [None]
  - HEARING IMPAIRED [None]
  - NEUTROPHIL COUNT DECREASED [None]
  - PLATELET COUNT DECREASED [None]
